FAERS Safety Report 25924149 (Version 1)
Quarter: 2025Q4

REPORT INFORMATION
  Report Type: Spontaneous
  Country: EU (occurrence: EU)
  Receive Date: 20251015
  Receipt Date: 20251015
  Transmission Date: 20260118
  Serious: Yes (Other)
  Sender: MERCK SHARP & DOHME LLC
  Company Number: None

PATIENT
  Age: 55 Year
  Sex: Female

DRUGS (1)
  1. KEYTRUDA [Suspect]
     Active Substance: PEMBROLIZUMAB
     Indication: Invasive lobular breast carcinoma
     Dosage: 6 CURES
     Route: 042
     Dates: start: 20250410, end: 20250725

REACTIONS (3)
  - Immune-mediated myocarditis [Unknown]
  - Immune-mediated hypothyroidism [Unknown]
  - Troponin I increased [Unknown]

NARRATIVE: CASE EVENT DATE: 20250501
